FAERS Safety Report 12230661 (Version 1)
Quarter: 2016Q2

REPORT INFORMATION
  Report Type: Spontaneous
  Country: US (occurrence: US)
  Receive Date: 20160401
  Receipt Date: 20160401
  Transmission Date: 20160815
  Serious: Yes (Other)
  Sender: FDA-Public Use
  Company Number: US-BAXTER-2016BAX016945

PATIENT
  Sex: Female

DRUGS (1)
  1. 0.9% SODIUM CHLORIDE IRRIGATION [Suspect]
     Active Substance: SODIUM CHLORIDE
     Indication: NASAL IRRIGATION
     Dosage: BOTTLE
     Route: 045
     Dates: start: 20151029, end: 201602

REACTIONS (2)
  - Eye infection [Not Recovered/Not Resolved]
  - Unevaluable event [Unknown]
